FAERS Safety Report 23658548 (Version 1)
Quarter: 2024Q1

REPORT INFORMATION
  Report Type: Spontaneous
  Country: US (occurrence: US)
  Receive Date: 20240321
  Receipt Date: 20240321
  Transmission Date: 20240409
  Serious: No
  Sender: FDA-Public Use
  Company Number: US-BRISTOL-MYERS SQUIBB COMPANY-2024-041435

PATIENT
  Age: 77 Year
  Sex: Female

DRUGS (1)
  1. LENALIDOMIDE [Suspect]
     Active Substance: LENALIDOMIDE
     Indication: Plasma cell myeloma
     Route: 048
     Dates: start: 20240312

REACTIONS (12)
  - Muscle spasms [Unknown]
  - Gait disturbance [Unknown]
  - COVID-19 [Unknown]
  - Back pain [Recovering/Resolving]
  - Constipation [Recovering/Resolving]
  - Bone pain [Unknown]
  - Chest pain [Unknown]
  - Insomnia [Unknown]
  - Fatigue [Unknown]
  - Decreased activity [Unknown]
  - Appetite disorder [Unknown]
  - Depression [Recovering/Resolving]
